FAERS Safety Report 4297558-2 (Version None)
Quarter: 2004Q1

REPORT INFORMATION
  Report Type: 
  Country: None (occurrence: None)
  Receive Date: 20040217
  Receipt Date: 20040217
  Transmission Date: 20041129
  Serious: Yes (Other)
  Sender: FDA-Public Use
  Company Number: None

PATIENT
  Sex: Male

DRUGS (1)
  1. ABILIFY [Suspect]
     Indication: BIPOLAR I DISORDER
     Dosage: ONE QD ORAL
     Route: 048
     Dates: start: 20040205, end: 20040207

REACTIONS (2)
  - DYSTONIA [None]
  - SENSORY LOSS [None]
